FAERS Safety Report 21383759 (Version 1)
Quarter: 2022Q3

REPORT INFORMATION
  Report Type: Spontaneous
  Country: BG (occurrence: BG)
  Receive Date: 20220928
  Receipt Date: 20220928
  Transmission Date: 20221027
  Serious: Yes (Death)
  Sender: FDA-Public Use
  Company Number: BG-NOVARTISPH-NVSC2022BG218747

PATIENT
  Age: 71 Year
  Sex: Male

DRUGS (1)
  1. ENTRESTO [Suspect]
     Active Substance: SACUBITRIL\VALSARTAN
     Indication: Cardiac failure
     Dosage: 50 MG, BID (24/26 MG)
     Route: 048

REACTIONS (2)
  - Death [Fatal]
  - Blood creatinine increased [Unknown]

NARRATIVE: CASE EVENT DATE: 20220901
